FAERS Safety Report 7677862-8 (Version None)
Quarter: 2011Q3

REPORT INFORMATION
  Report Type: 
  Country: None (occurrence: None)
  Receive Date: 20110811
  Receipt Date: 20110808
  Transmission Date: 20111222
  Serious: Yes (Hospitalization, Disabling)
  Sender: FDA-Public Use
  Company Number: US-MERCK-0804USA06240

PATIENT
  Age: 73 Year
  Sex: Female
  Weight: 50 kg

DRUGS (3)
  1. FOSAMAX [Suspect]
     Route: 048
     Dates: start: 20000701, end: 20060919
  2. HYDROCHLOROTHIAZIDE [Concomitant]
     Indication: OEDEMA
     Route: 065
     Dates: start: 19990101
  3. FOSAMAX [Suspect]
     Indication: OSTEOPOROSIS
     Route: 048
     Dates: start: 19990101, end: 20061001

REACTIONS (19)
  - OSTEONECROSIS OF JAW [None]
  - JAW DISORDER [None]
  - MEMORY IMPAIRMENT [None]
  - GAIT DISTURBANCE [None]
  - BONE DISORDER [None]
  - BLOOD CHOLESTEROL INCREASED [None]
  - DENTAL CARIES [None]
  - DIZZINESS [None]
  - FISTULA [None]
  - MUSCULAR WEAKNESS [None]
  - PRESYNCOPE [None]
  - GINGIVAL DISORDER [None]
  - CONSTIPATION [None]
  - SINUS DISORDER [None]
  - HYPERTENSION [None]
  - CEREBROVASCULAR ACCIDENT [None]
  - ORAL INFECTION [None]
  - COLD SWEAT [None]
  - LOSS OF CONSCIOUSNESS [None]
